FAERS Safety Report 6253145-8 (Version None)
Quarter: 2009Q3

REPORT INFORMATION
  Report Type: 
  Country: None (occurrence: None)
  Receive Date: 20090629
  Receipt Date: 20090629
  Transmission Date: 20100115
  Serious: Yes (Other)
  Sender: FDA-Public Use
  Company Number: None

PATIENT
  Age: 29 Year
  Sex: Male
  Weight: 86.1834 kg

DRUGS (1)
  1. CIPROFLOXACIN [Suspect]
     Indication: ACUTE SINUSITIS
     Dosage: 500MG 2 TIMES DAILY PO
     Route: 048
     Dates: start: 20090612, end: 20090619

REACTIONS (9)
  - ARTHRALGIA [None]
  - BACK PAIN [None]
  - FEELING HOT [None]
  - INFLAMMATION [None]
  - MUSCULOSKELETAL PAIN [None]
  - NECK PAIN [None]
  - NEUROPATHY PERIPHERAL [None]
  - PAIN IN EXTREMITY [None]
  - TENDON PAIN [None]
